FAERS Safety Report 5706340-8 (Version None)
Quarter: 2008Q2

REPORT INFORMATION
  Report Type: 
  Country: None (occurrence: None)
  Receive Date: 20080401
  Receipt Date: 20070503
  Transmission Date: 20081010
  Serious: Yes (Other)
  Sender: FDA-Public Use
  Company Number: 2007SU0042

PATIENT
  Age: 51 Year
  Sex: Female

DRUGS (10)
  1. SULAR [Suspect]
     Indication: HYPERTENSION
     Dosage: 20 MG, PO
     Route: 048
  2. CIMETIDINE [Concomitant]
  3. SYNTHROID [Concomitant]
  4. FLEXERIL [Concomitant]
  5. BENTYL [Concomitant]
  6. CARAFATE [Concomitant]
  7. TOPROL-XL [Concomitant]
  8. ZETIA [Concomitant]
  9. DARVOCET [Concomitant]
  10. FIORICET [Concomitant]

REACTIONS (7)
  - DRUG INEFFECTIVE [None]
  - EAR PAIN [None]
  - FLUSHING [None]
  - HEADACHE [None]
  - HYPERHIDROSIS [None]
  - MUSCLE SPASMS [None]
  - MYALGIA [None]
